FAERS Safety Report 17445909 (Version 1)
Quarter: 2020Q1

REPORT INFORMATION
  Report Type: Spontaneous
  Country: DE (occurrence: DE)
  Receive Date: 20200221
  Receipt Date: 20200221
  Transmission Date: 20200409
  Serious: Yes (Hospitalization)
  Sender: FDA-Public Use
  Company Number: DE-009507513-2002DEU006734

PATIENT
  Age: 20 Month
  Sex: Male

DRUGS (1)
  1. MIRTAZAPINE. [Suspect]
     Active Substance: MIRTAZAPINE
     Dosage: DAILY DOSE: 90 MG MILLGRAM(S) EVERY TOTAL
     Route: 048

REACTIONS (3)
  - Somnolence [Recovered/Resolved]
  - Product administration error [Recovered/Resolved]
  - Accidental exposure to product by child [Recovered/Resolved]

NARRATIVE: CASE EVENT DATE: 20191221
